FAERS Safety Report 7420832-5 (Version None)
Quarter: 2011Q2

REPORT INFORMATION
  Report Type: 
  Country: None (occurrence: None)
  Receive Date: 20110418
  Receipt Date: 20110408
  Transmission Date: 20111010
  Serious: Yes (Other)
  Sender: FDA-Public Use
  Company Number: CN-ROCHE-770150

PATIENT
  Age: 53 Year
  Sex: Female

DRUGS (6)
  1. BEVACIZUMAB [Suspect]
     Indication: LUNG ADENOCARCINOMA METASTATIC
     Dosage: DOSING AMOUNT ALSO REPORTED AS 400MG.
     Route: 065
     Dates: start: 20101029
  2. ERLOTINIB [Suspect]
     Indication: LUNG ADENOCARCINOMA METASTATIC
     Route: 048
     Dates: start: 20100506, end: 20100920
  3. NAVELBINE [Suspect]
     Indication: LUNG ADENOCARCINOMA METASTATIC
     Dosage: DAY 1, DAY 8 FOR 4 CYCLES.
     Route: 065
     Dates: start: 20101029
  4. CISPLATIN [Suspect]
     Indication: LUNG ADENOCARCINOMA METASTATIC
     Dosage: DAY 1-DAY 3 FOR 4 CYCLES.
     Route: 065
     Dates: start: 20101029
  5. ZOLEDRONIC ACID [Concomitant]
     Indication: LUNG CANCER METASTATIC
  6. SUTENT [Concomitant]
     Indication: LUNG ADENOCARCINOMA METASTATIC
     Route: 048
     Dates: end: 20101001

REACTIONS (4)
  - NEUTROPHIL COUNT DECREASED [None]
  - NAUSEA [None]
  - PNEUMOTHORAX [None]
  - WHITE BLOOD CELL COUNT DECREASED [None]
